FAERS Safety Report 8053448-0 (Version None)
Quarter: 2012Q1

REPORT INFORMATION
  Report Type: 
  Country: None (occurrence: None)
  Receive Date: 20120118
  Receipt Date: 20111207
  Transmission Date: 20120608
  Serious: Yes (Other)
  Sender: FDA-Public Use
  Company Number: JP-GLAXOSMITHKLINE-B0768061A

PATIENT
  Sex: Female

DRUGS (3)
  1. CYMBALTA [Concomitant]
     Dosage: 60MG PER DAY
  2. VALPROATE SODIUM [Concomitant]
     Dosage: 400MG PER DAY
  3. LAMICTAL [Suspect]
     Indication: BIPOLAR I DISORDER
     Dosage: 25MG PER DAY
     Route: 048
     Dates: start: 20111111, end: 20111114

REACTIONS (6)
  - DEPRESSED LEVEL OF CONSCIOUSNESS [None]
  - DECREASED ACTIVITY [None]
  - MANIA [None]
  - EUPHORIC MOOD [None]
  - MALAISE [None]
  - EMOTIONAL DISORDER [None]
